FAERS Safety Report 12081623 (Version 1)
Quarter: 2016Q1

REPORT INFORMATION
  Report Type: Other
  Country: US (occurrence: US)
  Receive Date: 20160216
  Receipt Date: 20160216
  Transmission Date: 20160526
  Serious: Yes (Other)
  Sender: FDA-Public Use
  Company Number: US-B. BRAUN MEDICAL INC.-1047916

PATIENT
  Age: 57 Year

DRUGS (1)
  1. CEFAZOLIN SODIUM. [Suspect]
     Active Substance: CEFAZOLIN SODIUM
     Route: 042

REACTIONS (4)
  - Pruritus [None]
  - Hepatic enzyme abnormal [None]
  - Drug-induced liver injury [None]
  - Pyrexia [None]
